FAERS Safety Report 5013775-8 (Version None)
Quarter: 2006Q2

REPORT INFORMATION
  Report Type: 
  Country: None (occurrence: None)
  Receive Date: 20060526
  Receipt Date: 20060526
  Transmission Date: 20061013
  Serious: No
  Sender: FDA-Public Use
  Company Number: None

PATIENT
  Age: 20 Year
  Sex: Female

DRUGS (1)
  1. RHOGAM [Suspect]
     Dosage: 50 MG IM INJECTION
     Route: 030

REACTIONS (1)
  - MEDICATION ERROR [None]
